FAERS Safety Report 4475508-3 (Version None)
Quarter: 2004Q4

REPORT INFORMATION
  Report Type: 
  Country: None (occurrence: None)
  Receive Date: 20041015
  Receipt Date: 20041006
  Transmission Date: 20050328
  Serious: Yes (Hospitalization)
  Sender: FDA-Public Use
  Company Number: AU-MERCK-0410AUS00091

PATIENT
  Age: 60 Year
  Sex: Female

DRUGS (4)
  1. ASPIRIN [Concomitant]
     Route: 065
  2. ATORVASTATIN CALCIUM [Concomitant]
     Route: 065
  3. METOPROLOL TARTRATE [Concomitant]
     Route: 065
  4. VIOXX [Suspect]
     Indication: OSTEOARTHRITIS
     Route: 048
     Dates: start: 20010101, end: 20041001

REACTIONS (1)
  - CORONARY ARTERY OCCLUSION [None]
